FAERS Safety Report 7606948-9 (Version None)
Quarter: 2011Q3

REPORT INFORMATION
  Report Type: 
  Country: None (occurrence: None)
  Receive Date: 20110706
  Receipt Date: 20110621
  Transmission Date: 20111222
  Serious: Yes (Other)
  Sender: FDA-Public Use
  Company Number: 2010MA002237

PATIENT
  Age: 65 Year
  Sex: Female
  Weight: 80.7403 kg

DRUGS (31)
  1. AMBIEN [Concomitant]
  2. COQ10 [Concomitant]
  3. CHANTIX [Concomitant]
  4. MELATONIN [Concomitant]
  5. NITROGLYCERIN [Concomitant]
  6. TOPROL-XL [Concomitant]
  7. PRAVACHOL [Concomitant]
  8. LOVAZA [Concomitant]
  9. LOVAZA [Concomitant]
  10. CLARINEX [Concomitant]
  11. VERSED [Concomitant]
  12. HURRCAINE SPRAY [Concomitant]
  13. METOPROLOL TARTRATE [Concomitant]
  14. RANEXA [Concomitant]
  15. NIASPAN [Concomitant]
  16. MEPERIDINE HCL [Concomitant]
  17. METOCLOPRAMIDE [Suspect]
     Dosage: 10 MG; QID; PO
     Route: 048
     Dates: start: 20070319, end: 20091001
  18. ZETIA [Concomitant]
  19. PANTOPRAZOLE SODIUM [Concomitant]
  20. ALTACE [Concomitant]
  21. PROTONIX [Concomitant]
  22. ASPIRIN [Concomitant]
  23. PLAVIX [Concomitant]
  24. PHENERGAN HCL [Concomitant]
  25. ISOSORBIDE MONONITRATE [Concomitant]
  26. NEXIUM [Concomitant]
  27. FOLIC ACID [Concomitant]
  28. DEMEROL [Concomitant]
  29. GABAPENTIN [Concomitant]
  30. AZITHROMYCIN [Concomitant]
  31. SUMATRIPTAN SUCCINATE [Concomitant]

REACTIONS (23)
  - SOMNOLENCE [None]
  - BURNS THIRD DEGREE [None]
  - RESTLESSNESS [None]
  - AKATHISIA [None]
  - THERMAL BURN [None]
  - ANKLE FRACTURE [None]
  - CHEST DISCOMFORT [None]
  - BREAST CYST [None]
  - EXTRAPYRAMIDAL DISORDER [None]
  - IRON DEFICIENCY ANAEMIA [None]
  - BRONCHITIS [None]
  - SINUS CONGESTION [None]
  - TARDIVE DYSKINESIA [None]
  - ECONOMIC PROBLEM [None]
  - FATIGUE [None]
  - ASTHENIA [None]
  - MUSCULOSKELETAL STIFFNESS [None]
  - PARKINSONISM [None]
  - EMOTIONAL DISORDER [None]
  - HEADACHE [None]
  - PUPILS UNEQUAL [None]
  - UPPER-AIRWAY COUGH SYNDROME [None]
  - NECK PAIN [None]
